FAERS Safety Report 8548378-1 (Version None)
Quarter: 2012Q3

REPORT INFORMATION
  Report Type: 
  Country: None (occurrence: None)
  Receive Date: 20120730
  Receipt Date: 20120723
  Transmission Date: 20120928
  Serious: Yes (Hospitalization, Other)
  Sender: FDA-Public Use
  Company Number: CA-JNJFOC-20120200518

PATIENT
  Sex: Female
  Weight: 43.9 kg

DRUGS (4)
  1. REMICADE [Suspect]
     Indication: CROHN'S DISEASE
     Route: 042
     Dates: start: 20110601
  2. MULTI-VITAMINS [Concomitant]
     Route: 065
  3. ZOFRAN [Concomitant]
     Route: 065
  4. FOLIC ACID [Concomitant]
     Route: 065

REACTIONS (3)
  - NAUSEA [None]
  - MATERNAL EXPOSURE DURING PREGNANCY [None]
  - ABORTION [None]
